FAERS Safety Report 5827208-2 (Version None)
Quarter: 2008Q3

REPORT INFORMATION
  Report Type: 
  Country: None (occurrence: None)
  Receive Date: 20080725
  Receipt Date: 20080716
  Transmission Date: 20090109
  Serious: Yes (Hospitalization)
  Sender: FDA-Public Use
  Company Number: GXKR2008AU06650

PATIENT
  Age: 71 Year
  Sex: Male

DRUGS (1)
  1. METOPROLOL (NGX) (METOPROLOL) UNKNOWN, 50MG [Suspect]
     Indication: HYPERTENSION
     Dosage: 12 X 50 MG, BID; ORAL
     Route: 048
     Dates: start: 20040101, end: 20080501

REACTIONS (3)
  - BLOOD PRESSURE INCREASED [None]
  - CIRCULATORY COLLAPSE [None]
  - DIZZINESS [None]
